FAERS Safety Report 6059647-1 (Version None)
Quarter: 2009Q1

REPORT INFORMATION
  Report Type: 
  Country: None (occurrence: None)
  Receive Date: 20090130
  Receipt Date: 20090123
  Transmission Date: 20090719
  Serious: Yes (Hospitalization)
  Sender: FDA-Public Use
  Company Number: US-JNJFOC-20090106439

PATIENT
  Sex: Female
  Weight: 68.95 kg

DRUGS (3)
  1. TOPAMAX [Suspect]
     Indication: MIGRAINE PROPHYLAXIS
     Route: 048
  2. LITHIUM [Concomitant]
     Indication: BIPOLAR DISORDER
     Route: 048
  3. PAXIL CR [Concomitant]
     Indication: BIPOLAR DISORDER
     Route: 048

REACTIONS (3)
  - INITIAL INSOMNIA [None]
  - SOMNOLENCE [None]
  - THYROID CANCER [None]
